FAERS Safety Report 11717634 (Version 2)
Quarter: 2015Q4

REPORT INFORMATION
  Report Type: Spontaneous
  Country: US (occurrence: US)
  Receive Date: 20151110
  Receipt Date: 20151210
  Transmission Date: 20160304
  Serious: Yes (Other)
  Sender: FDA-Public Use
  Company Number: US-ASTRAZENECA-2015SF06683

PATIENT
  Sex: Male

DRUGS (4)
  1. MYALEPT [Concomitant]
     Active Substance: METRELEPTIN
  2. BYDUREON [Concomitant]
     Active Substance: EXENATIDE
  3. BYETTA [Concomitant]
     Active Substance: EXENATIDE
  4. BRILINTA [Suspect]
     Active Substance: TICAGRELOR
     Indication: ACUTE CORONARY SYNDROME
     Route: 048

REACTIONS (1)
  - Haemoptysis [Unknown]
